FAERS Safety Report 19121083 (Version 1)
Quarter: 2021Q2

REPORT INFORMATION
  Report Type: Spontaneous
  Country: US (occurrence: US)
  Receive Date: 20210412
  Receipt Date: 20210412
  Transmission Date: 20210717
  Serious: No
  Sender: FDA-Public Use
  Company Number: None

PATIENT
  Sex: Female

DRUGS (1)
  1. VERZENIO [Suspect]
     Active Substance: ABEMACICLIB
     Indication: BREAST CANCER
     Dosage: ON HOLD
     Route: 048
     Dates: start: 202012

REACTIONS (4)
  - Surgery [None]
  - Diarrhoea [None]
  - Therapy interrupted [None]
  - Vomiting [None]
